FAERS Safety Report 5126061-2 (Version None)
Quarter: 2006Q4

REPORT INFORMATION
  Report Type: 
  Country: None (occurrence: None)
  Receive Date: 20061010
  Receipt Date: 20061010
  Transmission Date: 20070319
  Serious: Yes (Hospitalization)
  Sender: FDA-Public Use
  Company Number: None

PATIENT
  Age: 80 Year
  Sex: Male
  Weight: 82 kg

DRUGS (10)
  1. NATRECOR [Suspect]
     Indication: CARDIAC FAILURE CONGESTIVE
     Dosage: 10 UG/KG SQ BID
     Route: 058
     Dates: start: 20060921
  2. VALSARTIN [Concomitant]
  3. OMEPRAZOLE [Concomitant]
  4. ASPIRIN [Concomitant]
  5. ALLOPURINOL [Concomitant]
  6. ATENOLOL [Concomitant]
  7. PLAVIX [Concomitant]
  8. NISCIN [Concomitant]
  9. LOVASTATIN [Concomitant]
  10. FORMOTEROL [Concomitant]

REACTIONS (6)
  - FEELING ABNORMAL [None]
  - HAEMATURIA [None]
  - HYPOTENSION [None]
  - OXYGEN SATURATION DECREASED [None]
  - PALLOR [None]
  - THROMBOSIS [None]
